FAERS Safety Report 8422766-6 (Version None)
Quarter: 2012Q2

REPORT INFORMATION
  Report Type: 
  Country: None (occurrence: None)
  Receive Date: 20120608
  Receipt Date: 20120604
  Transmission Date: 20120825
  Serious: Yes (Hospitalization, Other)
  Sender: FDA-Public Use
  Company Number: US-MERCK-1107USA02571

PATIENT
  Age: 71 Year
  Sex: Female
  Weight: 75 kg

DRUGS (5)
  1. FOSAMAX [Suspect]
     Indication: OSTEOPOROSIS PROPHYLAXIS
     Route: 048
     Dates: start: 20000601, end: 20080526
  2. FOSAMAX [Suspect]
     Indication: OSTEOPENIA
     Route: 048
     Dates: start: 20000601, end: 20080526
  3. FOSAMAX [Suspect]
     Indication: OSTEOPOROSIS
     Route: 048
     Dates: start: 20080527, end: 20090813
  4. ALENDRONATE SODIUM [Suspect]
     Indication: OSTEOPOROSIS
     Route: 048
     Dates: start: 20080527, end: 20090801
  5. ALENDRONATE SODIUM [Suspect]
     Indication: OSTEOPENIA
     Route: 048
     Dates: start: 20080527, end: 20090801

REACTIONS (28)
  - HIP FRACTURE [None]
  - DEEP VEIN THROMBOSIS [None]
  - POLYNEUROPATHY [None]
  - BONE PAIN [None]
  - MUSCLE SPASMS [None]
  - ECCHYMOSIS [None]
  - HERPES ZOSTER [None]
  - CRYING [None]
  - SUBCUTANEOUS HAEMATOMA [None]
  - FEMUR FRACTURE [None]
  - ANAEMIA POSTOPERATIVE [None]
  - HAEMOGLOBIN DECREASED [None]
  - PAIN IN EXTREMITY [None]
  - INTERVERTEBRAL DISC DEGENERATION [None]
  - MUSCULAR WEAKNESS [None]
  - SLEEP APNOEA SYNDROME [None]
  - VARICOSE VEIN [None]
  - LOW TURNOVER OSTEOPATHY [None]
  - INSOMNIA [None]
  - HYPOXIA [None]
  - SPONDYLOLISTHESIS [None]
  - PAIN [None]
  - FALL [None]
  - ARTHROPATHY [None]
  - RASH [None]
  - OSTEOARTHRITIS [None]
  - HYPOTENSION [None]
  - OSTEOPETROSIS [None]
